FAERS Safety Report 9700154 (Version 2)
Quarter: 2014Q1

REPORT INFORMATION
  Report Type: Spontaneous
  Country: ES (occurrence: ES)
  Receive Date: 20131121
  Receipt Date: 20140206
  Transmission Date: 20141002
  Serious: Yes (Hospitalization, Other)
  Sender: FDA-Public Use
  Company Number: ES-SHIRE-ALL1-2013-07905

PATIENT
  Age: 55 Year
  Sex: Male

DRUGS (2)
  1. XAGRID [Suspect]
     Indication: POLYCYTHAEMIA VERA
     Dosage: UNK, UNKNOWN
     Route: 048
     Dates: start: 2010, end: 201310
  2. HYDROXYUREA [Concomitant]
     Indication: POLYCYTHAEMIA VERA
     Dosage: 1 DF, 2X/DAY:BID
     Route: 048
     Dates: start: 2009, end: 2013

REACTIONS (5)
  - Cardiomyopathy [Not Recovered/Not Resolved]
  - Fibrosis [Unknown]
  - Haemoglobin decreased [Unknown]
  - Pyrexia [Unknown]
  - Off label use [Unknown]
